FAERS Safety Report 7050281-3 (Version None)
Quarter: 2010Q4

REPORT INFORMATION
  Report Type: 
  Country: None (occurrence: None)
  Receive Date: 20101013
  Receipt Date: 20100928
  Transmission Date: 20110411
  Serious: Yes (Life-Threatening)
  Sender: FDA-Public Use
  Company Number: AUR-APL-2010-02401

PATIENT
  Age: 88 Year
  Sex: Male
  Weight: 74 kg

DRUGS (7)
  1. METFORMIN HCL [Suspect]
     Dosage: 850MG-TID-ORAL
     Route: 048
     Dates: start: 19980101, end: 20100910
  2. OMEPRAZOLE [Concomitant]
  3. LISINOPRIL [Concomitant]
  4. DOXAZOSIN MESYLATE [Concomitant]
  5. DRIED FERROUS SULPHATE [Concomitant]
  6. GLICLAZIDE [Concomitant]
  7. PIOGLITAZONE [Concomitant]

REACTIONS (3)
  - DRUG INTERACTION [None]
  - HYPERKALAEMIA [None]
  - RENAL TUBULAR ACIDOSIS [None]
